FAERS Safety Report 6968634-8 (Version None)
Quarter: 2010Q3

REPORT INFORMATION
  Report Type: 
  Country: None (occurrence: None)
  Receive Date: 20100901
  Receipt Date: 20100816
  Transmission Date: 20110219
  Serious: Yes (Other)
  Sender: FDA-Public Use
  Company Number: JPI-P-011904

PATIENT
  Age: 38 Year
  Sex: Female
  Weight: 63.5036 kg

DRUGS (4)
  1. XYREM [Suspect]
     Indication: PAIN
     Dosage: 9 GM (4.5 GM,2 IN 1 D),ORAL
     Route: 048
     Dates: start: 20080806
  2. XYREM [Suspect]
     Indication: SLEEP DISORDER
     Dosage: 9 GM (4.5 GM,2 IN 1 D),ORAL
     Route: 048
     Dates: start: 20080806
  3. OXYMORPHONE HYDROCHLORIDE [Concomitant]
  4. THYROID [Concomitant]

REACTIONS (3)
  - JOINT DISLOCATION [None]
  - PAIN IN EXTREMITY [None]
  - UPPER LIMB FRACTURE [None]
